FAERS Safety Report 12424337 (Version 1)
Quarter: 2016Q2

REPORT INFORMATION
  Report Type: Spontaneous
  Country: US (occurrence: None)
  Receive Date: 20160531
  Receipt Date: 20160531
  Transmission Date: 20160815
  Serious: Yes (Hospitalization)
  Sender: FDA-Public Use
  Company Number: None

PATIENT
  Age: 61 Year
  Sex: Male
  Weight: 105.1 kg

DRUGS (3)
  1. TAXOL [Suspect]
     Active Substance: PACLITAXEL
     Dates: end: 20160517
  2. CARBOPLATIN. [Suspect]
     Active Substance: CARBOPLATIN
     Dates: end: 20160517
  3. METFORMIN HYDROCHLORIDE. [Suspect]
     Active Substance: METFORMIN HYDROCHLORIDE
     Dates: end: 20160521

REACTIONS (8)
  - Abdominal pain [None]
  - Chills [None]
  - Asthenia [None]
  - Tremor [None]
  - Pyrexia [None]
  - Diarrhoea [None]
  - Pulmonary embolism [None]
  - Sinusitis [None]

NARRATIVE: CASE EVENT DATE: 20160522
